FAERS Safety Report 16202989 (Version 2)
Quarter: 2019Q2

REPORT INFORMATION
  Report Type: Spontaneous
  Country: AR (occurrence: AR)
  Receive Date: 20190416
  Receipt Date: 20190418
  Transmission Date: 20190711
  Serious: Yes (Death, Hospitalization, Other)
  Sender: FDA-Public Use
  Company Number: AR-009507513-1904ARG005249

PATIENT
  Age: 62 Year
  Sex: Male

DRUGS (3)
  1. PEMETREXED DISODIUM [Suspect]
     Active Substance: PEMETREXED DISODIUM
     Indication: LUNG ADENOCARCINOMA
  2. KEYTRUDA [Suspect]
     Active Substance: PEMBROLIZUMAB
     Indication: LUNG ADENOCARCINOMA
     Dosage: 200 MILLIGRAM, EVERY 21 DAYS
     Route: 042
  3. PLATINUM [Suspect]
     Active Substance: PLATINUM
     Indication: LUNG ADENOCARCINOMA
     Dosage: UNK, CYCLICAL

REACTIONS (3)
  - Oxygen saturation decreased [Fatal]
  - Pulmonary fibrosis [Fatal]
  - Pneumonitis [Fatal]

NARRATIVE: CASE EVENT DATE: 2019
